FAERS Safety Report 22206248 (Version 1)
Quarter: 2023Q2

REPORT INFORMATION
  Report Type: Report from Study
  Country: US (occurrence: US)
  Receive Date: 20230413
  Receipt Date: 20230413
  Transmission Date: 20230721
  Serious: Yes (Death, Other)
  Sender: FDA-Public Use
  Company Number: US-INSMED-2022-01054-USAA

PATIENT
  Sex: Female

DRUGS (4)
  1. ARIKAYCE [Suspect]
     Active Substance: AMIKACIN
     Indication: Product used for unknown indication
     Dosage: 590 MILLIGRAM, QD
     Route: 055
     Dates: start: 20220331, end: 202206
  2. ARIKAYCE [Suspect]
     Active Substance: AMIKACIN
     Dosage: 590 MILLIGRAM, QD
     Route: 055
     Dates: start: 20220616, end: 2022
  3. ARIKAYCE [Suspect]
     Active Substance: AMIKACIN
     Dosage: UNK UNK, QD
     Route: 055
     Dates: start: 20221126, end: 20221219
  4. ARIKAYCE [Suspect]
     Active Substance: AMIKACIN
     Dosage: UNK UNK, QD
     Route: 055
     Dates: start: 20230205

REACTIONS (12)
  - Death [Fatal]
  - Breast cancer metastatic [Not Recovered/Not Resolved]
  - Lymphadenopathy [Unknown]
  - Back pain [Not Recovered/Not Resolved]
  - Aphonia [Recovered/Resolved]
  - Productive cough [Unknown]
  - Dysphonia [Recovered/Resolved]
  - Dysphonia [Not Recovered/Not Resolved]
  - Cough [Recovered/Resolved]
  - Malaise [Unknown]
  - Cough [Unknown]
  - Product dose omission issue [Unknown]

NARRATIVE: CASE EVENT DATE: 20220101
